FAERS Safety Report 5535406-0 (Version None)
Quarter: 2007Q4

REPORT INFORMATION
  Report Type: 
  Country: None (occurrence: None)
  Receive Date: 20071206
  Receipt Date: 20071121
  Transmission Date: 20080405
  Serious: Yes (Other)
  Sender: FDA-Public Use
  Company Number: JP-BAYER-200710984BYL

PATIENT
  Age: 78 Year
  Sex: Female

DRUGS (4)
  1. KERORIN [Suspect]
     Route: 048
  2. LEVOFLOXACIN [Concomitant]
     Indication: UPPER RESPIRATORY TRACT INFLAMMATION
     Route: 048
  3. CARBOCISTEINE [Concomitant]
     Indication: UPPER RESPIRATORY TRACT INFLAMMATION
     Route: 048
  4. COLD(SALICYLAMIDE, ACETAMINOPHEN, CAFFEINE.ANHYDROUS, PROMETHAZINE) [Concomitant]
     Route: 048

REACTIONS (1)
  - ACUTE GENERALISED EXANTHEMATOUS PUSTULOSIS [None]
